FAERS Safety Report 5504206-X (Version None)
Quarter: 2007Q4

REPORT INFORMATION
  Report Type: 
  Country: None (occurrence: None)
  Receive Date: 20071101
  Receipt Date: 20071029
  Transmission Date: 20080405
  Serious: Yes (Hospitalization)
  Sender: FDA-Public Use
  Company Number: B0493298A

PATIENT

DRUGS (1)
  1. NELARABINE [Suspect]

REACTIONS (3)
  - GAIT DISTURBANCE [None]
  - SENSORY LOSS [None]
  - SPINAL CORD INJURY [None]
